FAERS Safety Report 7552578-7 (Version None)
Quarter: 2011Q2

REPORT INFORMATION
  Report Type: 
  Country: None (occurrence: None)
  Receive Date: 20110609
  Receipt Date: 20110531
  Transmission Date: 20111010
  Serious: Yes (Hospitalization, Other)
  Sender: FDA-Public Use
  Company Number: 2011001721

PATIENT
  Age: 72 Year
  Sex: Male

DRUGS (4)
  1. CISPLATIN [Suspect]
     Indication: NON-SMALL CELL LUNG CANCER
     Dosage: 75 MG/M2, UID/QD, IV NOS
     Route: 042
     Dates: start: 20090513, end: 20100126
  2. AVASTIN [Suspect]
     Indication: BRONCHIAL CARCINOMA
     Dosage: 7.5 MG/KG, 3W, IV NOS
     Route: 042
     Dates: start: 20091012, end: 20110214
  3. TARCEVA [Suspect]
     Indication: NON-SMALL CELL LUNG CANCER
     Dosage: 150 MG, UID/QD, ORAL
     Route: 048
     Dates: start: 20100625, end: 20110307
  4. ETOPOSIDE [Suspect]
     Indication: NON-SMALL CELL LUNG CANCER
     Dosage: 100 MG/M2, UID/QD, IV NOS
     Route: 042
     Dates: start: 20090513, end: 20100126

REACTIONS (7)
  - PANCYTOPENIA [None]
  - ACUTE MYELOID LEUKAEMIA [None]
  - LARGE CELL LUNG CANCER STAGE IV [None]
  - DERMATITIS ACNEIFORM [None]
  - ASTHENIA [None]
  - HYPERTENSION [None]
  - APLASIA [None]
